FAERS Safety Report 4434923-4 (Version None)
Quarter: 2004Q3

REPORT INFORMATION
  Report Type: 
  Country: None (occurrence: None)
  Receive Date: 20040726
  Receipt Date: 20040510
  Transmission Date: 20050211
  Serious: No
  Sender: FDA-Public Use
  Company Number: USA040567008

PATIENT
  Sex: Female

DRUGS (6)
  1. FORTEO [Suspect]
     Dates: start: 20030801
  2. NEXIUM [Concomitant]
  3. PREDNISONE [Concomitant]
  4. CALCIUM [Concomitant]
  5. IRON [Concomitant]
  6. GERITOL [Concomitant]

REACTIONS (8)
  - ABDOMINAL PAIN [None]
  - DIARRHOEA [None]
  - DYSPEPSIA [None]
  - FLATULENCE [None]
  - GASTRIC DISORDER [None]
  - GASTROOESOPHAGEAL REFLUX DISEASE [None]
  - TENDERNESS [None]
  - WEIGHT DECREASED [None]
